FAERS Safety Report 6945100-7 (Version None)
Quarter: 2010Q3

REPORT INFORMATION
  Report Type: 
  Country: None (occurrence: None)
  Receive Date: 20100827
  Receipt Date: 20100816
  Transmission Date: 20110219
  Serious: Yes (Other)
  Sender: FDA-Public Use
  Company Number: US-SANOFI-AVENTIS-2010SA049290

PATIENT
  Age: 62 Year
  Sex: Male

DRUGS (1)
  1. AMBIEN [Suspect]
     Route: 065

REACTIONS (6)
  - AMNESIA [None]
  - BINGE EATING [None]
  - FATIGUE [None]
  - PAIN [None]
  - SOMNAMBULISM [None]
  - WEIGHT INCREASED [None]
